FAERS Safety Report 6221720-2 (Version None)
Quarter: 2009Q2

REPORT INFORMATION
  Report Type: 
  Country: None (occurrence: None)
  Receive Date: 20090608
  Receipt Date: 20090521
  Transmission Date: 20091009
  Serious: Yes (Other)
  Sender: FDA-Public Use
  Company Number: 2007S1005441

PATIENT
  Age: 53 Year
  Sex: Female
  Weight: 79.3795 kg

DRUGS (5)
  1. PHOSPHOSODA FLAVOR NOT SPECIFIED [Suspect]
     Indication: COLONOSCOPY
     Dosage: PO
     Route: 048
     Dates: start: 20050518, end: 20050518
  2. LANTUS [Concomitant]
  3. GLUCOVANCE [Concomitant]
  4. INSULIN [Concomitant]
  5. COMPAZINE /00013302/ [Concomitant]

REACTIONS (5)
  - DIABETIC NEPHROPATHY [None]
  - DRUG TOXICITY [None]
  - HYPERPHOSPHATAEMIA [None]
  - NEPHROCALCINOSIS [None]
  - RENAL FAILURE CHRONIC [None]
